FAERS Safety Report 5061788-2 (Version None)
Quarter: 2006Q3

REPORT INFORMATION
  Report Type: 
  Country: None (occurrence: None)
  Receive Date: 20060703
  Receipt Date: 20060119
  Transmission Date: 20061208
  Serious: No
  Sender: FDA-Public Use
  Company Number: 2006S1000587

PATIENT
  Age: 31 Year
  Sex: Female

DRUGS (7)
  1. CLOZAPINE [Suspect]
     Dosage: 150 MG;HS;ORAL
     Route: 048
     Dates: start: 20051006
  2. RANITIDINE HYDROCHLORIDE [Concomitant]
  3. QUETIAPINE FUMARATE [Concomitant]
  4. VALPROATE SODIUM [Concomitant]
  5. ALPRAZOLAM [Concomitant]
  6. ORAL CONTRACEPTIVE NOS [Concomitant]
  7. MONTELUKAST SODIUM [Concomitant]

REACTIONS (1)
  - GRANULOCYTOPENIA [None]
